FAERS Safety Report 8567029-3 (Version None)
Quarter: 2012Q3

REPORT INFORMATION
  Report Type: 
  Country: None (occurrence: None)
  Receive Date: 20120803
  Receipt Date: 20111217
  Transmission Date: 20120928
  Serious: No
  Sender: FDA-Public Use
  Company Number: US-ABBOTT-11P-163-0884171-00

PATIENT
  Sex: Female
  Weight: 90.8 kg

DRUGS (1)
  1. NIASPAN [Suspect]
     Indication: LIPIDS ABNORMAL
     Dates: start: 20111201, end: 20111210

REACTIONS (5)
  - ERYTHEMA [None]
  - INSOMNIA [None]
  - SKIN OEDEMA [None]
  - SKIN BURNING SENSATION [None]
  - PRURITUS [None]
